FAERS Safety Report 6771158-4 (Version None)
Quarter: 2010Q2

REPORT INFORMATION
  Report Type: 
  Country: None (occurrence: None)
  Receive Date: 20100616
  Receipt Date: 20100602
  Transmission Date: 20101027
  Serious: Yes (Hospitalization, Other)
  Sender: FDA-Public Use
  Company Number: IT-BAYER-201018557GPV

PATIENT
  Age: 28 Year
  Sex: Male

DRUGS (6)
  1. FLUDARABINE [Suspect]
     Indication: STEM CELL TRANSPLANT
     Dosage: ON DAYS -6 TO -2 PRE-TRANSPLANT
     Route: 042
  2. TREOSULFAN [Suspect]
     Indication: STEM CELL TRANSPLANT
     Dosage: ON DAYS -6 TO -4 PRE-TRANSPLANT
     Route: 042
  3. RITUXIMAB [Suspect]
     Indication: STEM CELL TRANSPLANT
     Dosage: ON DAY -1 TRANSPLANT
     Route: 042
  4. ATG-FRESENIUS [Concomitant]
     Indication: PROPHYLAXIS AGAINST GRAFT VERSUS HOST DISEASE
     Dosage: ON DAYS -4 TO -2 PRE-TRANSPALNT
     Route: 042
  5. CYCLOSPORINE [Concomitant]
     Indication: PROPHYLAXIS AGAINST GRAFT VERSUS HOST DISEASE
     Dosage: STANDARD THERAPY
  6. METHOTREXATE [Concomitant]
     Indication: PROPHYLAXIS AGAINST GRAFT VERSUS HOST DISEASE
     Dosage: SHORT COURSE

REACTIONS (6)
  - ACUTE GRAFT VERSUS HOST DISEASE IN SKIN [None]
  - CHOLECYSTITIS [None]
  - CYTOMEGALOVIRUS INFECTION [None]
  - FEBRILE NEUTROPENIA [None]
  - NEUROLOGICAL DECOMPENSATION [None]
  - PARAPARESIS [None]
